FAERS Safety Report 4993468-3 (Version None)
Quarter: 2006Q2

REPORT INFORMATION
  Report Type: 
  Country: None (occurrence: None)
  Receive Date: 20060504
  Receipt Date: 20060504
  Transmission Date: 20061013
  Serious: Yes (Other)
  Sender: FDA-Public Use
  Company Number: None

PATIENT
  Age: 49 Year
  Sex: Female
  Weight: 63.5036 kg

DRUGS (2)
  1. SUDAFED PE     10MG    PFIZER [Suspect]
     Indication: HYPERSENSITIVITY
     Dosage: 1 PILL    EVERY 4 HOURS   PO
     Route: 048
     Dates: start: 20060401, end: 20060427
  2. SUDAFED PE     10MG    PFIZER [Suspect]
     Indication: SINUS HEADACHE
     Dosage: 1 PILL    EVERY 4 HOURS   PO
     Route: 048
     Dates: start: 20060401, end: 20060427

REACTIONS (3)
  - CIRCUMSTANCE OR INFORMATION CAPABLE OF LEADING TO MEDICATION ERROR [None]
  - MEDICATION ERROR [None]
  - OVERDOSE [None]
